FAERS Safety Report 6219381-1 (Version None)
Quarter: 2009Q2

REPORT INFORMATION
  Report Type: 
  Country: None (occurrence: None)
  Receive Date: 20090609
  Receipt Date: 20090601
  Transmission Date: 20091009
  Serious: Yes (Hospitalization)
  Sender: FDA-Public Use
  Company Number: US-BIOGENIDEC-2009BI007573

PATIENT
  Age: 41 Year
  Sex: Male
  Weight: 76 kg

DRUGS (1)
  1. AVONEX [Suspect]
     Indication: MULTIPLE SCLEROSIS
     Route: 030
     Dates: start: 20081201

REACTIONS (9)
  - ANXIETY [None]
  - ASOCIAL BEHAVIOUR [None]
  - ASTHENIA [None]
  - DEPRESSED MOOD [None]
  - DYSSTASIA [None]
  - FALL [None]
  - MULTIPLE SCLEROSIS [None]
  - MULTIPLE SCLEROSIS RELAPSE [None]
  - MUSCULAR WEAKNESS [None]
